FAERS Safety Report 9328163 (Version 3)
Quarter: 2013Q3

REPORT INFORMATION
  Report Type: Spontaneous
  Country: US (occurrence: US)
  Receive Date: 20130604
  Receipt Date: 20130711
  Transmission Date: 20140515
  Serious: Yes (Other)
  Sender: FDA-Public Use
  Company Number: US-UCBSA-087116

PATIENT
  Age: 59 Year
  Sex: Female

DRUGS (5)
  1. CIMZIA [Suspect]
     Indication: RHEUMATOID ARTHRITIS
     Dosage: 400 MG, EXP DATE: MAR 2014, 89391 FOR 07/MAR/2013; EXP: JAN 2015, 88736 FOR 25/MAR AND 10/APR
     Dates: start: 20130307, end: 20130410
  2. ZYRTEC [Concomitant]
  3. BENADRYL [Concomitant]
     Indication: URTICARIA
     Route: 061
  4. SULFASALAZINE [Concomitant]
     Indication: RHEUMATOID ARTHRITIS
  5. CELEBREX [Concomitant]
     Indication: RHEUMATOID ARTHRITIS

REACTIONS (10)
  - Urticaria [Not Recovered/Not Resolved]
  - Psoriasis [Not Recovered/Not Resolved]
  - Skin ulcer [Recovered/Resolved]
  - Alopecia [Recovering/Resolving]
  - Dyspnoea [Recovering/Resolving]
  - Hypersensitivity [Recovered/Resolved]
  - Nasal congestion [Not Recovered/Not Resolved]
  - Eustachian tube obstruction [Not Recovered/Not Resolved]
  - Pain [Not Recovered/Not Resolved]
  - Dizziness [Not Recovered/Not Resolved]
